FAERS Safety Report 6358847-0 (Version None)
Quarter: 2009Q3

REPORT INFORMATION
  Report Type: 
  Country: None (occurrence: None)
  Receive Date: 20090916
  Receipt Date: 20090909
  Transmission Date: 20100115
  Serious: No
  Sender: FDA-Public Use
  Company Number: US-ABBOTT-09P-163-0596173-00

PATIENT
  Age: 50 Year
  Sex: Male

DRUGS (1)
  1. TRILIPIX [Suspect]
     Indication: DYSLIPIDAEMIA
     Route: 048

REACTIONS (1)
  - RASH [None]
